FAERS Safety Report 25757041 (Version 1)
Quarter: 2025Q3

REPORT INFORMATION
  Report Type: Spontaneous
  Country: EU (occurrence: EU)
  Receive Date: 20250903
  Receipt Date: 20250903
  Transmission Date: 20251020
  Serious: Yes (Other)
  Sender: BRISTOL-MYERS SQUIBB COMPANY
  Company Number: EU-BRISTOL-MYERS SQUIBB COMPANY-2025-121729

PATIENT
  Age: 62 Year
  Sex: Male

DRUGS (2)
  1. NELVUTAMIG [Suspect]
     Active Substance: NELVUTAMIG
     Indication: Malignant melanoma
     Dosage: 3 CYCLES RECEIVED
     Route: 042
     Dates: start: 202307
  2. NIVOLUMAB [Suspect]
     Active Substance: NIVOLUMAB
     Indication: Malignant melanoma
     Dosage: 3 CYCLES RECEIVED
     Route: 042
     Dates: start: 202307

REACTIONS (3)
  - Autoimmune uveitis [Unknown]
  - Autoimmune colitis [Unknown]
  - Lymphocytic hypophysitis [Unknown]

NARRATIVE: CASE EVENT DATE: 20250801
